FAERS Safety Report 5430104-6 (Version None)
Quarter: 2007Q3

REPORT INFORMATION
  Report Type: 
  Country: None (occurrence: None)
  Receive Date: 20070829
  Receipt Date: 20070820
  Transmission Date: 20080115
  Serious: Yes (Hospitalization)
  Sender: FDA-Public Use
  Company Number: CA-MERCK-0706CAN00121

PATIENT
  Age: 60 Year
  Sex: Female

DRUGS (5)
  1. FOSAMAX [Suspect]
     Indication: OSTEOPENIA
     Route: 048
     Dates: start: 20010101, end: 20010101
  2. FOSAMAX [Suspect]
     Route: 048
     Dates: start: 20011201, end: 20050101
  3. ALENDRONATE SODIUM [Suspect]
     Route: 065
     Dates: start: 20050801, end: 20070601
  4. ATENOLOL [Concomitant]
     Route: 065
     Dates: start: 20060201
  5. ASPIRIN [Concomitant]
     Route: 065
     Dates: start: 20060201

REACTIONS (5)
  - DYSPEPSIA [None]
  - HEART RATE INCREASED [None]
  - HYPERTENSION [None]
  - NAUSEA [None]
  - RAYNAUD'S PHENOMENON [None]
